FAERS Safety Report 23173264 (Version 2)
Quarter: 2024Q1

REPORT INFORMATION
  Report Type: Spontaneous
  Country: US (occurrence: US)
  Receive Date: 20231111
  Receipt Date: 20240320
  Transmission Date: 20240410
  Serious: No
  Sender: FDA-Public Use
  Company Number: US-SA-SAC20231103000025

PATIENT
  Age: 8 Year
  Sex: Female

DRUGS (1)
  1. DUPIXENT [Suspect]
     Active Substance: DUPILUMAB
     Indication: Dermatitis atopic
     Dosage: 300 MG, Q4W
     Route: 058
     Dates: start: 202305

REACTIONS (6)
  - Asthma [Recovering/Resolving]
  - Rash erythematous [Unknown]
  - Nasopharyngitis [Recovering/Resolving]
  - Pruritus [Unknown]
  - Skin burning sensation [Unknown]
  - Condition aggravated [Unknown]

NARRATIVE: CASE EVENT DATE: 20231001
